FAERS Safety Report 8533961-X (Version None)
Quarter: 2012Q3

REPORT INFORMATION
  Report Type: 
  Country: None (occurrence: None)
  Receive Date: 20120724
  Receipt Date: 20120720
  Transmission Date: 20120928
  Serious: Yes (Death)
  Sender: FDA-Public Use
  Company Number: GB-ROCHE-1090340

PATIENT
  Sex: Male
  Weight: 70 kg

DRUGS (2)
  1. MABTHERA [Suspect]
     Indication: RHEUMATOID ARTHRITIS
     Dosage: LAST DOSE PRIOR TO SAE:16/MAR/2012
     Route: 042
     Dates: start: 20120302, end: 20120316
  2. HYDROXYCHLOROQUINE SULFATE [Concomitant]

REACTIONS (1)
  - PNEUMONIA [None]
